FAERS Safety Report 6239831-4 (Version None)
Quarter: 2009Q2

REPORT INFORMATION
  Report Type: 
  Country: None (occurrence: None)
  Receive Date: 20090619
  Receipt Date: 20090611
  Transmission Date: 20091009
  Serious: No
  Sender: FDA-Public Use
  Company Number: 20096437

PATIENT
  Sex: Male

DRUGS (1)
  1. LIORESAL [Suspect]
     Indication: MUSCLE SPASTICITY
     Dosage: DAILY, INTRATHECAL

REACTIONS (9)
  - COUGH [None]
  - DEPRESSION [None]
  - DRUG DELIVERY SYSTEM MALFUNCTION [None]
  - GAIT DISTURBANCE [None]
  - HEART RATE INCREASED [None]
  - MUSCLE DISORDER [None]
  - MUSCLE SPASTICITY [None]
  - SPINAL DISORDER [None]
  - UNEVALUABLE EVENT [None]
